FAERS Safety Report 10562210 (Version 1)
Quarter: 2014Q4

REPORT INFORMATION
  Report Type: Spontaneous
  Country: US (occurrence: None)
  Receive Date: 20141031
  Receipt Date: 20141031
  Transmission Date: 20150529
  Serious: Yes (Hospitalization)
  Sender: FDA-Public Use
  Company Number: FK201404581

PATIENT
  Age: 67 Year
  Sex: Female

DRUGS (3)
  1. VANCOMYCIN [Suspect]
     Active Substance: VANCOMYCIN
     Indication: PRODUCT USED FOR UNKNOWN INDICATION
     Dosage: 2 MONTHS BEFORE ADMISSION
     Route: 042
  2. DAPTOMYCIN. [Concomitant]
     Active Substance: DAPTOMYCIN
  3. CEFTRIAXON [Suspect]
     Active Substance: CEFTRIAXONE
     Indication: PRODUCT USED FOR UNKNOWN INDICATION
     Dosage: INTRAVENOUS 2 MONTHS BEFORE ADMISSION

REACTIONS (3)
  - Cerebrovascular accident [None]
  - Drug reaction with eosinophilia and systemic symptoms [None]
  - Encephalopathy [None]
